FAERS Safety Report 17689820 (Version 1)
Quarter: 2020Q2

REPORT INFORMATION
  Report Type: Spontaneous
  Country: CN (occurrence: CN)
  Receive Date: 20200421
  Receipt Date: 20200421
  Transmission Date: 20200714
  Serious: Yes (Other)
  Sender: FDA-Public Use
  Company Number: CN-JNJFOC-20200415758

PATIENT

DRUGS (1)
  1. MOTRIN INFANTS [Suspect]
     Active Substance: IBUPROFEN
     Indication: PYREXIA
     Dosage: 1.25ML/TIME
     Route: 048
     Dates: start: 20200409

REACTIONS (2)
  - Choking [Unknown]
  - Vomiting [Unknown]

NARRATIVE: CASE EVENT DATE: 20200409
